FAERS Safety Report 7596939-9 (Version None)
Quarter: 2011Q3

REPORT INFORMATION
  Report Type: 
  Country: None (occurrence: None)
  Receive Date: 20110708
  Receipt Date: 20110706
  Transmission Date: 20111222
  Serious: Yes (Other)
  Sender: FDA-Public Use
  Company Number: US-PFIZER INC-2011152134

PATIENT
  Sex: Female
  Weight: 90.703 kg

DRUGS (13)
  1. SEROQUEL [Concomitant]
     Indication: SLEEP DISORDER
     Dosage: 200 MG, 1X/DAY
  2. TRIDIONE [Concomitant]
     Indication: ANXIETY
     Dosage: 50 MG, 1X/DAY
  3. DILAUDID [Concomitant]
     Indication: BACK PAIN
     Dosage: UNK
  4. ZOLOFT [Concomitant]
     Indication: DEPRESSION
     Dosage: 50 MG, 1X/DAY
  5. ATIVAN [Concomitant]
     Indication: NAUSEA
     Dosage: 1 MG, 3X/DAY
  6. DECADRON [Concomitant]
     Indication: BREAST CANCER
     Dosage: 4 MG, 2X/DAY
  7. KLONOPIN [Concomitant]
     Indication: ANXIETY
     Dosage: 0.5 MG, 3X/DAY
  8. TRILEPTAL [Concomitant]
     Indication: AFFECTIVE DISORDER
     Dosage: 300 MG, 4X/DAY
  9. TOPROL-XL [Concomitant]
     Indication: SUPRAVENTRICULAR TACHYCARDIA
     Dosage: 50 MG, 1X/DAY
  10. LAMICTAL [Concomitant]
     Indication: BIPOLAR DISORDER
     Dosage: 200 MG, 1X/DAY
  11. CHANTIX [Suspect]
     Indication: SMOKING CESSATION THERAPY
     Dosage: 0.5 MG, 1X/DAY
     Route: 048
     Dates: start: 20110619, end: 20110601
  12. CHANTIX [Suspect]
     Dosage: 1 MG, 2X/DAY
     Route: 048
     Dates: start: 20110601
  13. NEXIUM [Concomitant]
     Indication: GASTROOESOPHAGEAL REFLUX DISEASE
     Dosage: 40 MG, 1X/DAY

REACTIONS (8)
  - NAUSEA [None]
  - MUSCLE TWITCHING [None]
  - MALAISE [None]
  - MUSCLE SPASMS [None]
  - ANXIETY [None]
  - BLEPHAROSPASM [None]
  - SLEEP DISORDER [None]
  - CONDITION AGGRAVATED [None]
